FAERS Safety Report 8911295 (Version 1)
Quarter: 2012Q4

REPORT INFORMATION
  Report Type: 
  Country: US (occurrence: US)
  Receive Date: 20121116
  Receipt Date: 20121116
  Transmission Date: 20130627
  Serious: Yes (Death)
  Sender: FDA-Public Use
  Company Number: US-GLAXOSMITHKLINE-A0995846A

PATIENT
  Age: 64 Year
  Sex: Female
  Weight: 70 kg

DRUGS (6)
  1. VOTRIENT [Suspect]
     Indication: PRODUCT USED FOR UNKNOWN INDICATION
     Dosage: 200MG See dosage text
     Route: 048
  2. OXYCODONE [Concomitant]
  3. NEXIUM [Concomitant]
  4. LOSARTAN POTASSIUM [Concomitant]
  5. PHENERGAN [Concomitant]
  6. AMITIZA [Concomitant]

REACTIONS (5)
  - Death [Fatal]
  - Diarrhoea [Recovered/Resolved]
  - Pruritus [Unknown]
  - Fatigue [Unknown]
  - Decreased appetite [Unknown]
